FAERS Safety Report 10236629 (Version 1)
Quarter: 2014Q2

REPORT INFORMATION
  Report Type: Spontaneous
  Country: CA (occurrence: CA)
  Receive Date: 20140613
  Receipt Date: 20140613
  Transmission Date: 20141212
  Serious: Yes (Other)
  Sender: FDA-Public Use
  Company Number: CA-ACTAVIS-2014-13222

PATIENT
  Age: 12 Year
  Sex: Male

DRUGS (2)
  1. ERYTHROMYCIN (UNKNOWN) [Suspect]
     Indication: PHARYNGITIS BACTERIAL
     Dosage: UNKNOWN
     Route: 065
  2. ACETAMINOPHEN-CODEINE PHOSPHATE (UNKNOWN) [Interacting]
     Indication: PHARYNGITIS BACTERIAL
     Dosage: UNKNOWN
     Route: 065

REACTIONS (2)
  - Psychotic disorder [Recovered/Resolved]
  - Drug interaction [Recovered/Resolved]
